FAERS Safety Report 5578677-7 (Version None)
Quarter: 2008Q1

REPORT INFORMATION
  Report Type: 
  Country: None (occurrence: None)
  Receive Date: 20080102
  Receipt Date: 20071221
  Transmission Date: 20080703
  Serious: Yes (Other)
  Sender: FDA-Public Use
  Company Number: US-JNJFOC-20071206097

PATIENT
  Sex: Female
  Weight: 117.94 kg

DRUGS (6)
  1. FENTANYL TRANSDERMAL SYSTEM [Suspect]
     Indication: PAIN
     Route: 062
  2. ULTRAM [Concomitant]
     Indication: BREAKTHROUGH PAIN
     Route: 048
  3. HUMULIN R [Concomitant]
     Route: 058
  4. HUMULIN R [Concomitant]
     Indication: DIABETES MELLITUS
     Dosage: AM
     Route: 058
  5. LYRICA [Concomitant]
     Indication: NEUROPATHY PERIPHERAL
     Route: 048
  6. NEURONTIN [Concomitant]
     Indication: NEUROPATHY PERIPHERAL
     Route: 048

REACTIONS (5)
  - APPLICATION SITE ERYTHEMA [None]
  - APPLICATION SITE IRRITATION [None]
  - BLOOD TRIGLYCERIDES INCREASED [None]
  - DRUG ADMINISTERED AT INAPPROPRIATE SITE [None]
  - HYPERGLYCAEMIA [None]
